FAERS Safety Report 10369604 (Version 5)
Quarter: 2017Q1

REPORT INFORMATION
  Report Type: Report from Study
  Country: US (occurrence: US)
  Receive Date: 20140807
  Receipt Date: 20170208
  Transmission Date: 20170428
  Serious: No
  Sender: FDA-Public Use
  Company Number: US-AMGEN INC.-USASP2014024356

PATIENT
  Age: 41 Year
  Sex: Female

DRUGS (16)
  1. ZOFRAN [Concomitant]
     Active Substance: ONDANSETRON HYDROCHLORIDE
     Dosage: 16 MG, UNK
     Route: 042
  2. NEULASTA [Suspect]
     Active Substance: PEGFILGRASTIM
     Indication: PRODUCT USED FOR UNKNOWN INDICATION
     Dosage: 6 MG, UNK
     Route: 058
  3. HERCEPTIN [Suspect]
     Active Substance: TRASTUZUMAB
     Indication: BREAST CANCER
     Dosage: 230 MG, UNK
     Route: 042
     Dates: start: 20130410
  4. DEXAMETHASONE. [Concomitant]
     Active Substance: DEXAMETHASONE
     Dosage: 20 MG, UNK
     Route: 042
  5. EMEND [Concomitant]
     Active Substance: APREPITANT
     Dosage: 150 MG, UNK
     Route: 042
  6. ZOFRAN [Concomitant]
     Active Substance: ONDANSETRON HYDROCHLORIDE
     Dosage: 8 MG, UNK
     Route: 042
  7. HERCEPTIN [Suspect]
     Active Substance: TRASTUZUMAB
     Dosage: 115 MG, UNK
     Route: 042
     Dates: start: 20130808
  8. HERCEPTIN [Suspect]
     Active Substance: TRASTUZUMAB
     Dosage: 350 MG, UNK
     Route: 042
  9. PEPCID [Concomitant]
     Active Substance: FAMOTIDINE
     Dosage: 20 MG, UNK
     Route: 042
  10. TAXOL [Concomitant]
     Active Substance: PACLITAXEL
     Dosage: 125 MG, UNK
     Route: 042
  11. CYTOXAN [Concomitant]
     Active Substance: CYCLOPHOSPHAMIDE
     Dosage: (600 MG/M2, 1 IN 14 D)
     Route: 042
  12. BENADRYL [Concomitant]
     Active Substance: DIPHENHYDRAMINE HYDROCHLORIDE
     Dosage: 50 MG, UNK
     Route: 042
  13. ADRIAMYCIN [Concomitant]
     Active Substance: DOXORUBICIN HYDROCHLORIDE
     Dosage: 95 MG, (60 MG/M2,1 IN 14 D)
     Route: 042
  14. HERCEPTIN [Suspect]
     Active Substance: TRASTUZUMAB
     Dosage: 115 MG, UNK
     Route: 042
     Dates: start: 20130403
  15. NEUPOGEN [Suspect]
     Active Substance: FILGRASTIM
     Indication: PRODUCT USED FOR UNKNOWN INDICATION
     Dosage: 300 MG, UNK
     Route: 058
  16. ZANTAC [Concomitant]
     Active Substance: RANITIDINE HYDROCHLORIDE
     Dosage: UNK

REACTIONS (14)
  - Paranasal sinus hypersecretion [Unknown]
  - Epistaxis [Unknown]
  - Nasal decongestion therapy [Unknown]
  - White blood cell count decreased [Unknown]
  - Neutrophil count decreased [Unknown]
  - Abdominal pain upper [Unknown]
  - Back pain [Unknown]
  - Insomnia [Unknown]
  - Productive cough [Unknown]
  - Fall [Unknown]
  - Peripheral swelling [Unknown]
  - Pain [Unknown]
  - Chest pain [Unknown]
  - Back pain [Not Recovered/Not Resolved]
